FAERS Safety Report 10423376 (Version 1)
Quarter: 2014Q3

REPORT INFORMATION
  Report Type: Spontaneous
  Country: US (occurrence: None)
  Receive Date: 20140722
  Receipt Date: 20140722
  Transmission Date: 20150326
  Serious: No
  Sender: FDA-Public Use
  Company Number: AEGR000404

PATIENT
  Age: 41 Year
  Sex: Male
  Weight: 127 kg

DRUGS (9)
  1. CARVEDILOL. [Concomitant]
     Active Substance: CARVEDILOL
  2. CHANTIX (VARENICLINE TARTRATE) [Concomitant]
     Active Substance: VARENICLINE TARTRATE
  3. PROTONIX [Concomitant]
     Active Substance: PANTOPRAZOLE SODIUM
  4. PLAVIX (CLOPIDOGREL BISULFATE) [Concomitant]
  5. LISINOPRIL. [Concomitant]
     Active Substance: LISINOPRIL
  6. JUXTAPID [Suspect]
     Active Substance: LOMITAPIDE MESYLATE
     Indication: TYPE IIA HYPERLIPIDAEMIA
     Route: 048
     Dates: start: 201403
  7. IBUPROFEN. [Concomitant]
     Active Substance: IBUPROFEN
  8. ROBAXIN (METHOCARBAMOL) [Concomitant]
  9. ZETIA [Concomitant]
     Active Substance: EZETIMIBE

REACTIONS (2)
  - Blood creatine phosphokinase increased [None]
  - Diarrhoea [None]

NARRATIVE: CASE EVENT DATE: 201403
